FAERS Safety Report 18591237 (Version 1)
Quarter: 2020Q4

REPORT INFORMATION
  Report Type: Report from Study
  Country: MX (occurrence: MX)
  Receive Date: 20201208
  Receipt Date: 20201208
  Transmission Date: 20210114
  Serious: Yes (Death)
  Sender: FDA-Public Use
  Company Number: NVSC2020MX326165

PATIENT
  Sex: Male

DRUGS (1)
  1. EXFORGE HCT [Suspect]
     Active Substance: AMLODIPINE BESYLATE\HYDROCHLOROTHIAZIDE\VALSARTAN
     Indication: BLOOD GLUCOSE
     Dosage: 1 DF, BID
     Route: 048

REACTIONS (3)
  - Cardiac arrest [Fatal]
  - Off label use [Unknown]
  - Product use in unapproved indication [Unknown]
